FAERS Safety Report 10430189 (Version 1)
Quarter: 2014Q3

REPORT INFORMATION
  Report Type: Spontaneous
  Country: US (occurrence: None)
  Receive Date: 20140808
  Receipt Date: 20140808
  Transmission Date: 20150326
  Serious: No
  Sender: FDA-Public Use
  Company Number: US-015208

PATIENT
  Age: 52 Year
  Sex: Female
  Weight: 56.7 kg

DRUGS (1)
  1. PREPOPIK [Suspect]
     Active Substance: ANHYDROUS CITRIC ACID\MAGNESIUM OXIDE\SODIUM PICOSULFATE
     Indication: BOWEL PREPARATION
     Dosage: FIRST PACKET:  27 APRIL 2014 AT 5:30PM; SECOND PACKET:  28 APRIL 2014 AT 4:00 AM ORAL
     Dates: start: 20140427, end: 20140428

REACTIONS (2)
  - Migraine [None]
  - Vomiting [None]

NARRATIVE: CASE EVENT DATE: 20140427
